FAERS Safety Report 15868246 (Version 1)
Quarter: 2019Q1

REPORT INFORMATION
  Report Type: Spontaneous
  Country: US (occurrence: US)
  Receive Date: 20190125
  Receipt Date: 20190125
  Transmission Date: 20190417
  Serious: Yes (Death)
  Sender: FDA-Public Use
  Company Number: None

PATIENT
  Age: 74 Year
  Sex: Male
  Weight: 79.65 kg

DRUGS (3)
  1. NACL 0.9% [Concomitant]
     Active Substance: SODIUM CHLORIDE
  2. IMLYGIC [Concomitant]
     Active Substance: TALIMOGENE LAHERPAREPVEC
  3. OPDIVO [Suspect]
     Active Substance: NIVOLUMAB
     Dosage: ?          OTHER FREQUENCY:EVERY 2 WEEKS;?
     Route: 041

REACTIONS (1)
  - Death [None]
